FAERS Safety Report 5512404-4 (Version None)
Quarter: 2007Q4

REPORT INFORMATION
  Report Type: 
  Country: None (occurrence: None)
  Receive Date: 20071108
  Receipt Date: 20071026
  Transmission Date: 20080405
  Serious: Yes (Other)
  Sender: FDA-Public Use
  Company Number: 220016M07USA

PATIENT
  Age: 11 Year
  Sex: Male
  Weight: 34.0198 kg

DRUGS (7)
  1. SAIZEN [Suspect]
     Indication: GROWTH HORMONE DEFICIENCY
     Dosage: 1.2 MG, 1 IN 1 DAYS, SUBCUTANEOUS
     Route: 058
  2. IMURAN [Suspect]
     Dosage: 50 MG, 1 IN 2 DAYS, ORAL
     Route: 048
  3. VFEND [Concomitant]
  4. ACYCLOVIR [Concomitant]
  5. CORTEF [Concomitant]
  6. LEVAQUIN [Concomitant]
  7. PREDNISONE [Concomitant]

REACTIONS (1)
  - SQUAMOUS CELL CARCINOMA [None]
